FAERS Safety Report 9066773 (Version 3)
Quarter: 2013Q3

REPORT INFORMATION
  Report Type: Spontaneous
  Country: US (occurrence: US)
  Receive Date: 20130214
  Receipt Date: 20130722
  Transmission Date: 20140515
  Serious: Yes (Hospitalization)
  Sender: FDA-Public Use
  Company Number: US-GLAXOSMITHKLINE-A1012063A

PATIENT
  Sex: Female

DRUGS (2)
  1. ADVAIR [Suspect]
     Indication: PRODUCT USED FOR UNKNOWN INDICATION
     Route: 055
     Dates: start: 20101214
  2. VENTOLIN HFA [Suspect]
     Indication: PRODUCT USED FOR UNKNOWN INDICATION
     Dosage: 90MCG UNKNOWN
     Route: 055
     Dates: start: 20110512

REACTIONS (4)
  - Pneumonia [Unknown]
  - Dyspnoea [Unknown]
  - Asthma [Unknown]
  - Anxiety [Unknown]
